FAERS Safety Report 8997544 (Version 1)
Quarter: 2013Q1

REPORT INFORMATION
  Report Type: Spontaneous
  Country: US (occurrence: US)
  Receive Date: 20130104
  Receipt Date: 20130104
  Transmission Date: 20140127
  Serious: Yes (Other)
  Sender: FDA-Public Use
  Company Number: US-009507513-00110207

PATIENT
  Age: 45 Year
  Sex: Female

DRUGS (6)
  1. SINGULAIR [Suspect]
     Dosage: 5 MG, QD
     Route: 048
  2. FLOVENT [Concomitant]
  3. THERAPY UNSPECIFIED [Concomitant]
  4. ESTROGENS (UNSPECIFIED) [Concomitant]
  5. PROVERA [Concomitant]
  6. MOTRIN [Concomitant]

REACTIONS (1)
  - Muscle spasms [Unknown]
